FAERS Safety Report 8913309 (Version 3)
Quarter: 2013Q1

REPORT INFORMATION
  Report Type: Spontaneous
  Country: US (occurrence: US)
  Receive Date: 20121116
  Receipt Date: 20130114
  Transmission Date: 20140127
  Serious: Yes (Hospitalization)
  Sender: FDA-Public Use
  Company Number: US-BAXTER-2012BAX023564

PATIENT
  Sex: Female

DRUGS (1)
  1. DIANEAL LOW CALCIUM [Suspect]
     Indication: PERITONEAL DIALYSIS
     Dosage: 8L
     Route: 033
     Dates: start: 20121019

REACTIONS (4)
  - Spinal fracture [Not Recovered/Not Resolved]
  - Back pain [Recovering/Resolving]
  - Sensation of pressure [Recovering/Resolving]
  - Fall [Recovering/Resolving]
